FAERS Safety Report 21168298 (Version 5)
Quarter: 2025Q1

REPORT INFORMATION
  Report Type: Report from Study
  Country: US (occurrence: US)
  Receive Date: 20220803
  Receipt Date: 20250128
  Transmission Date: 20250409
  Serious: Yes (Hospitalization, Other)
  Sender: TAKEDA
  Company Number: US-TAKEDA-2022TUS010161

PATIENT
  Sex: Female
  Weight: 109 kg

DRUGS (4)
  1. BRIGATINIB [Suspect]
     Active Substance: BRIGATINIB
     Indication: Lung neoplasm malignant
     Dosage: 180 MILLIGRAM, QD
     Dates: start: 20211027
  2. BRIGATINIB [Suspect]
     Active Substance: BRIGATINIB
     Dosage: 180 MILLIGRAM, QD
     Dates: start: 20211027
  3. BRIGATINIB [Suspect]
     Active Substance: BRIGATINIB
     Dosage: 90 MILLIGRAM, QD
     Dates: start: 20241019
  4. BRIGATINIB [Suspect]
     Active Substance: BRIGATINIB
     Dosage: 180 MILLIGRAM, QD

REACTIONS (18)
  - Hepatic enzyme increased [Unknown]
  - Illness [Unknown]
  - Appendicitis [Unknown]
  - Rash [Unknown]
  - Pregnancy [Unknown]
  - Influenza [Unknown]
  - Skin burning sensation [Unknown]
  - Alopecia [Unknown]
  - Abdominal pain lower [Unknown]
  - Fatigue [Unknown]
  - Pain [Unknown]
  - Nausea [Unknown]
  - Diarrhoea [Unknown]
  - Blood glucose increased [Unknown]
  - Muscle spasms [Unknown]
  - Migraine [Unknown]
  - Vomiting [Unknown]
  - Asthenia [Unknown]
